FAERS Safety Report 7681460-X (Version None)
Quarter: 2011Q3

REPORT INFORMATION
  Report Type: 
  Country: None (occurrence: None)
  Receive Date: 20110812
  Receipt Date: 20110804
  Transmission Date: 20111222
  Serious: Yes (Hospitalization)
  Sender: FDA-Public Use
  Company Number: JP-B.I. PHARMACEUTICALS,INC./RIDGEFIELD-2011-BP-19080NB

PATIENT
  Age: 83 Year
  Sex: Male

DRUGS (4)
  1. PRADAXA [Suspect]
     Indication: ATRIAL FIBRILLATION
     Dosage: 220 MG
     Route: 048
     Dates: start: 20110512, end: 20110801
  2. LASIX [Concomitant]
     Dosage: 20 MG
     Route: 048
  3. NITRODERM [Concomitant]
     Indication: ANGINA PECTORIS
  4. FERROUS CITRATE [Concomitant]
     Dosage: 50 MG
     Route: 048

REACTIONS (2)
  - TRANSURETHRAL BLADDER RESECTION [None]
  - DYSPEPSIA [None]
